FAERS Safety Report 12489907 (Version 1)
Quarter: 2016Q2

REPORT INFORMATION
  Report Type: Spontaneous
  Country: US (occurrence: US)
  Receive Date: 20160622
  Receipt Date: 20160622
  Transmission Date: 20160815
  Serious: No
  Sender: FDA-Public Use
  Company Number: US-UPSHER-SMITH LABORATORIES, INC.-16000881

PATIENT
  Age: 66 Year
  Sex: Male

DRUGS (9)
  1. TEMAZEPAM. [Concomitant]
     Active Substance: TEMAZEPAM
     Indication: INSOMNIA
     Dosage: UNK UNK, PRN
  2. TRAMADOL. [Concomitant]
     Active Substance: TRAMADOL
     Indication: HEADACHE
     Dosage: UNK, PRN
  3. NIACIN. [Concomitant]
     Active Substance: NIACIN
     Dosage: UNK
  4. TESTOSTERONE. [Suspect]
     Active Substance: TESTOSTERONE
     Indication: BLOOD TESTOSTERONE DECREASED
     Dosage: 100 MG, QD
     Route: 061
     Dates: start: 201601
  5. HERBAL EXTRACT NOS [Concomitant]
     Active Substance: HERBALS
     Dosage: UNK
  6. MELOXICAM. [Concomitant]
     Active Substance: MELOXICAM
     Indication: HEADACHE
     Dosage: UNK UNK, PRN
  7. FISH OIL [Concomitant]
     Active Substance: FISH OIL
     Dosage: UNK
  8. GLUCOSAMINE + CHONDROITIN [Concomitant]
     Dosage: UNK
  9. GARLIC. [Concomitant]
     Active Substance: GARLIC
     Dosage: UNK

REACTIONS (2)
  - Middle insomnia [Not Recovered/Not Resolved]
  - Drug ineffective [Not Recovered/Not Resolved]

NARRATIVE: CASE EVENT DATE: 201601
